FAERS Safety Report 8794509 (Version 1)
Quarter: 2012Q4

REPORT INFORMATION
  Report Type: 
  Country: US (occurrence: US)
  Receive Date: 20120917
  Receipt Date: 20120917
  Transmission Date: 20130627
  Serious: No
  Sender: FDA-Public Use
  Company Number: US-VERTEX PHARMACEUTICAL INC.-AE-2012-009912

PATIENT
  Age: 52 Year
  Sex: Male
  Weight: 105 kg

DRUGS (12)
  1. VX-950 [Suspect]
     Indication: HEPATITIS C
     Dosage: 750 mg, tid
     Route: 048
  2. PEGASYS [Suspect]
     Indication: HEPATITIS C
     Dosage: 180 ?g, UNK
  3. RIBASPHERE [Suspect]
     Indication: HEPATITIS C
  4. SERTRALINE [Concomitant]
  5. LISINOPRIL [Concomitant]
  6. METOPROLOL [Concomitant]
  7. DILTIAZEM [Concomitant]
  8. SEROQUEL [Concomitant]
  9. ALLOPURINOL [Concomitant]
  10. HYDROCORT AC [Concomitant]
  11. BENADRYL [Concomitant]
  12. IMODIUM A-D [Concomitant]

REACTIONS (8)
  - Headache [Unknown]
  - Dry skin [Unknown]
  - Pain [Unknown]
  - Fatigue [Unknown]
  - Anorectal discomfort [Unknown]
  - Diarrhoea [Unknown]
  - Pruritus [Unknown]
  - Rash [Unknown]
